FAERS Safety Report 21419240 (Version 1)
Quarter: 2022Q4

REPORT INFORMATION
  Report Type: Spontaneous
  Country: SE (occurrence: SE)
  Receive Date: 20221006
  Receipt Date: 20221006
  Transmission Date: 20230113
  Serious: Yes (Life-Threatening, Hospitalization)
  Sender: FDA-Public Use
  Company Number: None

PATIENT
  Age: 84 Year
  Sex: Male

DRUGS (7)
  1. NUBEQA [Suspect]
     Active Substance: DAROLUTAMIDE
     Indication: Prostate cancer
     Dosage: 2 DF, BID
     Route: 048
     Dates: start: 20220714, end: 20220807
  2. AZOPT [BRINZOLAMIDE] [Concomitant]
     Dosage: 10 MG/ML 1 DROP X 2
  3. GAVISCON [ALUMINIUM HYDROXIDE;CALCIUM CARBONATE;SODIUM ALGINATE;SO [Concomitant]
     Dosage: 15 ML
     Route: 048
  4. DUORESP SPIROMAX [BUDESONIDE;FORMOTEROL FUMARATE DIHYDRATE] [Concomitant]
     Dosage: 160 ?G/4,5 ?G/DOSE 1 INHALATION X 2
  5. FERROUS SULFATE [Concomitant]
     Active Substance: FERROUS SULFATE
     Dosage: 100 MG, QD
     Route: 048
  6. LEUPROLIDE ACETATE [Concomitant]
     Active Substance: LEUPROLIDE ACETATE
     Dosage: 11.25 MG
  7. LATANOPROST [Concomitant]
     Active Substance: LATANOPROST
     Dosage: 50 MICROGRAMS/ML 1 DROP AT NIGHT

REACTIONS (2)
  - Pulmonary embolism [Recovering/Resolving]
  - Hypotonia [Recovering/Resolving]

NARRATIVE: CASE EVENT DATE: 20220807
